FAERS Safety Report 8815161 (Version 4)
Quarter: 2013Q4

REPORT INFORMATION
  Report Type: Spontaneous
  Country: GB (occurrence: GB)
  Receive Date: 20120928
  Receipt Date: 20131022
  Transmission Date: 20140711
  Serious: Yes (Death)
  Sender: FDA-Public Use
  Company Number: GB-JNJFOC-20120504774

PATIENT
  Age: 37 Year
  Sex: Male
  Weight: 86 kg

DRUGS (6)
  1. EVICEL [Suspect]
     Indication: HAEMOSTASIS
     Route: 061
     Dates: start: 20120109, end: 20120109
  2. LOCAL HAEMOSTATICS [Suspect]
     Indication: HAEMOSTASIS
     Route: 061
     Dates: start: 20120109, end: 20120109
  3. ALL OTHER THERAPEUTIC PRODUCT [Concomitant]
     Indication: HAEMOSTASIS
     Route: 050
     Dates: start: 20120109, end: 20120109
  4. DICLOFENAC SODIUM [Concomitant]
     Indication: PAIN
     Route: 065
     Dates: start: 201110
  5. GENERAL ANESTHESIA [Concomitant]
     Indication: ANAESTHESIA
     Route: 065
  6. NSAIDS [Concomitant]
     Indication: PAIN
     Route: 065
     Dates: start: 201110

REACTIONS (4)
  - Air embolism [Fatal]
  - Drug administration error [Fatal]
  - Cardiac arrest [Fatal]
  - Pulseless electrical activity [Fatal]
